FAERS Safety Report 5844390-1 (Version None)
Quarter: 2008Q3

REPORT INFORMATION
  Report Type: 
  Country: None (occurrence: None)
  Receive Date: 20080813
  Receipt Date: 20080807
  Transmission Date: 20090109
  Serious: Yes (Disabling, Other)
  Sender: FDA-Public Use
  Company Number: GB-ALLERGAN-0809758US

PATIENT
  Sex: Female

DRUGS (2)
  1. DYSPORT [Suspect]
     Indication: SKIN COSMETIC PROCEDURE
     Dosage: UNK, SINGLE
     Route: 058
     Dates: start: 20080701, end: 20080701
  2. DYSPORT [Suspect]
     Indication: SKIN WRINKLING

REACTIONS (4)
  - MASTICATION DISORDER [None]
  - MUSCLE SPASMS [None]
  - MUSCULAR WEAKNESS [None]
  - SPEECH DISORDER [None]
